FAERS Safety Report 4402670-0 (Version None)
Quarter: 2004Q3

REPORT INFORMATION
  Report Type: 
  Country: None (occurrence: None)
  Receive Date: 20040721
  Receipt Date: 20031106
  Transmission Date: 20050211
  Serious: Yes (Hospitalization)
  Sender: FDA-Public Use
  Company Number: NL-BRISTOL-MYERS SQUIBB COMPANY-12428330

PATIENT
  Age: 39 Year
  Sex: Female

DRUGS (6)
  1. ATAZANAVIR [Suspect]
     Indication: HIV INFECTION
     Dosage: DOSE DECREASED TO 300 MG ON 03-SEP-2003 BECAUSE PATIENT ON TENOFOVIR AS WELL.
     Route: 048
     Dates: start: 20030401
  2. TENOFOVIR [Concomitant]
     Indication: HIV INFECTION
     Route: 048
  3. LAMIVUDINE [Concomitant]
     Indication: HIV INFECTION
     Route: 048
  4. RITONAVIR [Concomitant]
     Indication: HIV INFECTION
     Route: 048
     Dates: start: 20030903
  5. CO-TRIMOXAZOLE [Concomitant]
  6. FOLIC ACID [Concomitant]

REACTIONS (2)
  - LEUKOPENIA [None]
  - PYREXIA [None]
